FAERS Safety Report 22711428 (Version 2)
Quarter: 2024Q3

REPORT INFORMATION
  Report Type: Report from Study
  Country: US (occurrence: US)
  Receive Date: 20230717
  Receipt Date: 20240723
  Transmission Date: 20241017
  Serious: No
  Sender: VANDA PHARMACEUTICALS
  Company Number: US-VANDA PHARMACEUTICALS, INC-2023TASUS006616

PATIENT
  Sex: Female
  Weight: 76.689 kg

DRUGS (1)
  1. HETLIOZ [Suspect]
     Active Substance: TASIMELTEON
     Indication: Non-24-hour sleep-wake disorder
     Dosage: 20 MILLIGRAM, QHS, EVERY ONE HOUR BEFORE BEDTIME
     Route: 048
     Dates: start: 202301, end: 20230628

REACTIONS (2)
  - Dyspnoea [Unknown]
  - Snoring [Unknown]
